FAERS Safety Report 23442024 (Version 1)
Quarter: 2024Q1

REPORT INFORMATION
  Report Type: Spontaneous
  Country: CA (occurrence: CA)
  Receive Date: 20240125
  Receipt Date: 20240125
  Transmission Date: 20240410
  Serious: Yes (Other)
  Sender: FDA-Public Use
  Company Number: None

PATIENT
  Age: 61 Year
  Sex: Female

DRUGS (19)
  1. METHOTREXATE [Suspect]
     Active Substance: METHOTREXATE
     Indication: Rheumatoid arthritis
     Route: 065
  2. ACTEMRA [Suspect]
     Active Substance: TOCILIZUMAB
     Indication: Rheumatoid arthritis
     Dosage: 1 EVERY 2 WEEKS
     Route: 058
  3. LEFLUNOMIDE [Suspect]
     Active Substance: LEFLUNOMIDE
     Indication: Rheumatoid arthritis
     Route: 065
  4. RITUXIMAB [Suspect]
     Active Substance: RITUXIMAB
     Indication: Rheumatoid arthritis
  5. ASPIRIN [Concomitant]
     Active Substance: ASPIRIN
     Route: 065
  6. BUDESONIDE [Concomitant]
     Active Substance: BUDESONIDE
  7. CALCIUM [Concomitant]
     Active Substance: CALCIUM
  8. CYCLOBENZAPRINE [Concomitant]
     Active Substance: CYCLOBENZAPRINE
  9. FOLIC ACID [Concomitant]
     Active Substance: FOLIC ACID
  10. METFORMIN [Concomitant]
     Active Substance: METFORMIN HYDROCHLORIDE
  11. METOPROLOL [Concomitant]
     Active Substance: METOPROLOL
  12. NITROGLYCERIN [Concomitant]
     Active Substance: NITROGLYCERIN
  13. OMEGA 3 FISH [Concomitant]
  14. RABEPRAZOLE SODIUM [Concomitant]
     Active Substance: RABEPRAZOLE SODIUM
  15. RAMIPRIL [Concomitant]
     Active Substance: RAMIPRIL
  16. ROSUVASTATIN [Concomitant]
     Active Substance: ROSUVASTATIN
     Route: 058
  17. TERBUTALINE [Concomitant]
     Active Substance: TERBUTALINE
  18. VITAMIN D [Concomitant]
     Active Substance: VITAMIN D NOS
  19. ACTEMRA [Suspect]
     Active Substance: TOCILIZUMAB
     Indication: Rheumatoid arthritis
     Dosage: SOLUTION FOR INJECTION IN PRE-FILLED SYRINGE, 1 EVERY 1 WEEKS
     Route: 058

REACTIONS (5)
  - Drug ineffective [Recovered/Resolved]
  - Granuloma [Recovered/Resolved]
  - Haemoptysis [Recovered/Resolved]
  - Hypertransaminasaemia [Recovered/Resolved]
  - Pulmonary mass [Recovered/Resolved]
